FAERS Safety Report 8978155 (Version 2)
Quarter: 2013Q1

REPORT INFORMATION
  Report Type: Spontaneous
  Country: US (occurrence: US)
  Receive Date: 20121221
  Receipt Date: 20130116
  Transmission Date: 20140127
  Serious: Yes (Hospitalization, Other)
  Sender: FDA-Public Use
  Company Number: US-BAYER-2012-133001

PATIENT
  Age: 52 Year
  Sex: Female

DRUGS (4)
  1. YASMIN [Suspect]
     Indication: DYSMENORRHOEA
  2. HYDROCHLOROTHIAZIDE [Concomitant]
     Dosage: 25 MG, PER DAY
     Dates: start: 20061226
  3. COMPAZINE [Concomitant]
     Indication: MIGRAINE
  4. TYLENOL [Concomitant]
     Dosage: UNK, PRN

REACTIONS (5)
  - Cerebrovascular accident [Recovered/Resolved]
  - Embolism [None]
  - Off label use [None]
  - Pain [None]
  - Injury [Recovered/Resolved]
